FAERS Safety Report 10353300 (Version 2)
Quarter: 2014Q3

REPORT INFORMATION
  Report Type: Spontaneous
  Country: US (occurrence: US)
  Receive Date: 20140731
  Receipt Date: 20140731
  Transmission Date: 20150326
  Serious: Yes (Hospitalization, Other)
  Sender: FDA-Public Use
  Company Number: US-UCBSA-2014000038

PATIENT
  Sex: Male

DRUGS (4)
  1. DEXAMETHASONE. [Suspect]
     Active Substance: DEXAMETHASONE
     Dosage: 6 MG, 4X/DAY (QID)
  2. KEPPRA [Suspect]
     Active Substance: LEVETIRACETAM
     Dosage: UNK
  3. DEXAMETHASONE. [Suspect]
     Active Substance: DEXAMETHASONE
     Dosage: 10 MG, 4X/DAY (QID)
  4. DEXAMETHASONE. [Suspect]
     Active Substance: DEXAMETHASONE
     Dosage: 4 MG, 4X/DAY (QID)

REACTIONS (3)
  - Agitation [Recovered/Resolved]
  - Acute psychosis [Recovering/Resolving]
  - Irritability [Not Recovered/Not Resolved]
